FAERS Safety Report 5883207-6 (Version None)
Quarter: 2008Q3

REPORT INFORMATION
  Report Type: 
  Country: None (occurrence: None)
  Receive Date: 20080915
  Receipt Date: 20080902
  Transmission Date: 20090109
  Serious: Yes (Hospitalization)
  Sender: FDA-Public Use
  Company Number: AL-RANBAXY-2008RR-17730

PATIENT

DRUGS (2)
  1. VALPROATE SODIUM [Suspect]
     Dosage: 30 MG/KG, UNK
  2. PHENOBARBITAL (LILLY) [Suspect]
     Indication: EPILEPSY

REACTIONS (1)
  - REYE'S SYNDROME [None]
